FAERS Safety Report 18811462 (Version 2)
Quarter: 2025Q3

REPORT INFORMATION
  Report Type: Spontaneous
  Country: EU (occurrence: EU)
  Receive Date: 20210130
  Receipt Date: 20250806
  Transmission Date: 20251021
  Serious: Yes (Other)
  Sender: AUROBINDO
  Company Number: EU-SYMPHAR-208_GABAPENTIN_2020

PATIENT
  Age: 42 Year
  Sex: Male

DRUGS (3)
  1. GABAPENTIN [Suspect]
     Active Substance: GABAPENTIN
     Indication: Pain
     Dosage: 300 MILLIGRAM, 3 TIMES A DAY
     Route: 065
  2. OXYCODONE [Suspect]
     Active Substance: OXYCODONE
     Indication: Pain
     Dosage: 80 MILLIGRAM, 3 TIMES A DAY, CONTROLLED RELEASE TABLET
     Route: 065
  3. FENTANYL [Suspect]
     Active Substance: FENTANYL
     Indication: Pain
     Route: 065

REACTIONS (3)
  - Hypersensitivity [Recovered/Resolved]
  - Anaphylactic shock [Recovered/Resolved]
  - Constipation [Unknown]
